FAERS Safety Report 9174181 (Version 1)
Quarter: 2013Q1

REPORT INFORMATION
  Report Type: Spontaneous
  Country: US (occurrence: None)
  Receive Date: 20130318
  Receipt Date: 20130318
  Transmission Date: 20140127
  Serious: No
  Sender: FDA-Public Use
  Company Number: None

PATIENT
  Sex: Male
  Weight: 71.21 kg

DRUGS (1)
  1. CETUXIMAB (ERBITUX) (714692) [Suspect]
     Dates: start: 20130122, end: 20130305

REACTIONS (8)
  - Rash [None]
  - Confusional state [None]
  - Pneumonia [None]
  - Sinus tachycardia [None]
  - Laboratory test abnormal [None]
  - Anaemia [None]
  - Dehydration [None]
  - Hypomagnesaemia [None]
